FAERS Safety Report 5683875-8 (Version None)
Quarter: 2008Q1

REPORT INFORMATION
  Report Type: 
  Country: None (occurrence: None)
  Receive Date: 20080327
  Receipt Date: 20080327
  Transmission Date: 20080703
  Serious: Yes (Disabling, Other)
  Sender: FDA-Public Use
  Company Number: None

PATIENT
  Age: 47 Year
  Sex: Male
  Weight: 104.3273 kg

DRUGS (1)
  1. PYRIDOSTIGMINE BROMIDE [Suspect]
     Indication: DRUG THERAPY
     Dosage: 1/2 OF 60MG 3 TIMES PER DAY
     Dates: start: 20071128

REACTIONS (10)
  - DYSPNOEA EXERTIONAL [None]
  - FATIGUE [None]
  - HYPOAESTHESIA [None]
  - MUSCLE DISORDER [None]
  - MUSCLE INJURY [None]
  - MUSCULAR WEAKNESS [None]
  - NERVE CONDUCTION STUDIES ABNORMAL [None]
  - NEUROPATHY PERIPHERAL [None]
  - PHARMACEUTICAL PRODUCT COMPLAINT [None]
  - POOR QUALITY DRUG ADMINISTERED [None]
